FAERS Safety Report 8469336-1 (Version None)
Quarter: 2012Q2

REPORT INFORMATION
  Report Type: 
  Country: None (occurrence: None)
  Receive Date: 20120626
  Receipt Date: 20120615
  Transmission Date: 20120825
  Serious: Yes (Death)
  Sender: FDA-Public Use
  Company Number: CN-BRISTOL-MYERS SQUIBB COMPANY-16689523

PATIENT
  Age: 42 Year
  Sex: Male

DRUGS (6)
  1. AMIKACIN SULFATE [Suspect]
  2. CIPROFLOXACIN [Suspect]
  3. SULFADIAZINE [Suspect]
  4. IMIPENEM [Concomitant]
  5. PREDNISONE TAB [Concomitant]
  6. VANCOMYCIN HYCHLORIDE [Concomitant]

REACTIONS (2)
  - MULTI-ORGAN FAILURE [None]
  - DRUG INEFFECTIVE [None]
